FAERS Safety Report 8176712-3 (Version None)
Quarter: 2012Q1

REPORT INFORMATION
  Report Type: 
  Country: None (occurrence: None)
  Receive Date: 20120301
  Receipt Date: 20120217
  Transmission Date: 20120608
  Serious: Yes (Hospitalization)
  Sender: FDA-Public Use
  Company Number: DE-ELI_LILLY_AND_COMPANY-DE201202005625

PATIENT
  Age: 9 Year
  Sex: Male

DRUGS (3)
  1. STRATTERA [Suspect]
     Indication: ATTENTION DEFICIT/HYPERACTIVITY DISORDER
     Dosage: 10 MG, BID
     Route: 048
     Dates: start: 20111103, end: 20120206
  2. METHYLPHENIDATE HCL [Concomitant]
     Dosage: 30 MG, UNKNOWN
  3. RISPERIDONE [Concomitant]
     Dosage: 0.5 MG, BID
     Dates: end: 20120111

REACTIONS (3)
  - BLOOD PRESSURE INCREASED [None]
  - CONVERSION DISORDER [None]
  - TACHYCARDIA [None]
